FAERS Safety Report 8806915 (Version 1)
Quarter: 2012Q4

REPORT INFORMATION
  Report Type: 
  Country: DE (occurrence: DE)
  Receive Date: 20120925
  Receipt Date: 20120925
  Transmission Date: 20130627
  Serious: Yes (Other)
  Sender: FDA-Public Use
  Company Number: DE-ABBOTT-12P-062-0960212-00

PATIENT
  Sex: Female
  Weight: 54 kg

DRUGS (12)
  1. DUODOPA [Suspect]
     Indication: PARKINSON^S DISEASE
     Dosage: pump, approx 4.3 ml/h contin dose
     Route: 050
     Dates: start: 20111122
  2. DUODOPA [Suspect]
     Dosage: Gel 20 ml/ml/5ml/ml
     Route: 050
     Dates: start: 20111122
  3. LEVODOPA + CARBIDOPA [Concomitant]
     Indication: PARKINSON^S DISEASE
     Dosage: Administered at 10pm
  4. MOTILIUM [Concomitant]
     Indication: PRODUCT USED FOR UNKNOWN INDICATION
     Dosage: 3x2, admin times: 7am, 1pm, 3 pm, 60 mg daily
  5. LIORESAL [Concomitant]
     Indication: PRODUCT USED FOR UNKNOWN INDICATION
     Dosage: 30, admin times: 7am, 1pm, 5pm
  6. CIPRALEX [Concomitant]
     Indication: PRODUCT USED FOR UNKNOWN INDICATION
     Dosage: Time of admin: 7am
  7. L-THYROX [Concomitant]
     Indication: PRODUCT USED FOR UNKNOWN INDICATION
     Dosage: Time of admin: 7am
  8. RAMIPRIL [Concomitant]
     Indication: PRODUCT USED FOR UNKNOWN INDICATION
     Dosage: Time of admin: 7am
  9. HCT [Concomitant]
     Indication: PRODUCT USED FOR UNKNOWN INDICATION
     Dosage: Time of admin: 7am
  10. CLOZAPIN [Concomitant]
     Indication: PRODUCT USED FOR UNKNOWN INDICATION
     Dosage: Time of admin: 7pm
  11. SPASMEX [Concomitant]
     Indication: PRODUCT USED FOR UNKNOWN INDICATION
     Dosage: 3 times
  12. MADOPAR LT [Concomitant]
     Indication: PRODUCT USED FOR UNKNOWN INDICATION
     Dosage: as needed, max 3 times

REACTIONS (1)
  - Hyperhidrosis [Not Recovered/Not Resolved]
